FAERS Safety Report 16038496 (Version 3)
Quarter: 2019Q1

REPORT INFORMATION
  Report Type: Report from Study
  Country: US (occurrence: US)
  Receive Date: 20190305
  Receipt Date: 20190321
  Transmission Date: 20190418
  Serious: No
  Sender: FDA-Public Use
  Company Number: PHEH2019US009095

PATIENT
  Sex: Female

DRUGS (1)
  1. ENTRESTO [Suspect]
     Active Substance: SACUBITRIL\VALSARTAN
     Indication: CARDIAC FAILURE
     Route: 048

REACTIONS (6)
  - Back disorder [Unknown]
  - Dysstasia [Unknown]
  - Gait disturbance [Unknown]
  - Cardiac disorder [Unknown]
  - Arthropathy [Unknown]
  - Hypoacusis [Unknown]
